FAERS Safety Report 9255872 (Version 1)
Quarter: 2013Q2

REPORT INFORMATION
  Report Type: Spontaneous
  Country: US (occurrence: US)
  Receive Date: 20130425
  Receipt Date: 20130425
  Transmission Date: 20140414
  Serious: Yes (Death)
  Sender: FDA-Public Use
  Company Number: US-ELI_LILLY_AND_COMPANY-US201304006200

PATIENT
  Sex: 0

DRUGS (2)
  1. FORTEO [Suspect]
     Indication: OSTEOPOROSIS
     Dosage: UNK
     Dates: start: 20130319
  2. FORTEO [Suspect]
     Dosage: UNK
     Dates: start: 20130319

REACTIONS (1)
  - Hip fracture [Fatal]
